FAERS Safety Report 9301945 (Version 1)
Quarter: 2013Q2

REPORT INFORMATION
  Report Type: Spontaneous
  Country: PT (occurrence: PT)
  Receive Date: 20130521
  Receipt Date: 20130521
  Transmission Date: 20140414
  Serious: Yes (Other)
  Sender: FDA-Public Use
  Company Number: PT-MYLANLABS-2013S1010268

PATIENT
  Age: 53 Year
  Sex: Male

DRUGS (3)
  1. ACICLOVIR [Suspect]
     Indication: RETINITIS VIRAL
     Route: 042
  2. ACICLOVIR [Suspect]
     Indication: RETINITIS VIRAL
     Route: 048
  3. METHYLPREDNISOLONE [Concomitant]
     Indication: RETINITIS VIRAL
     Route: 065

REACTIONS (1)
  - Acute generalised exanthematous pustulosis [Recovered/Resolved]
